FAERS Safety Report 21163833 (Version 1)
Quarter: 2022Q3

REPORT INFORMATION
  Report Type: Spontaneous
  Country: US (occurrence: US)
  Receive Date: 20220803
  Receipt Date: 20220803
  Transmission Date: 20221027
  Serious: Yes (Other)
  Sender: FDA-Public Use
  Company Number: US-GLENMARK PHARMACEUTICALS-2022GMK073950

PATIENT
  Age: 45 Year
  Sex: Male

DRUGS (9)
  1. VORICONAZOLE [Suspect]
     Active Substance: VORICONAZOLE
     Indication: Candida endophthalmitis
     Dosage: UNK (100 ?G/0.1 ML) IN BOTH EYES
  2. VORICONAZOLE [Suspect]
     Active Substance: VORICONAZOLE
     Dosage: UNK (FOUR ADDITIONAL INTRAVITREAL INJECTIONS OF VORICONAZOLE IN BOTH EYES)
  3. VORICONAZOLE [Suspect]
     Active Substance: VORICONAZOLE
     Dosage: UNK (TWO INTRAVITREAL INJECTIONS OF VORICONAZOLE IN BOTH EYES)
  4. VORICONAZOLE [Suspect]
     Active Substance: VORICONAZOLE
     Dosage: UNK (ADMINISTERED AT THE END OF SURGERY TO EACH EYE)
  5. VORICONAZOLE [Suspect]
     Active Substance: VORICONAZOLE
     Indication: Candida endophthalmitis
     Dosage: 600 MILLIGRAM, QD (DAILY)
     Route: 048
  6. VANCOMYCIN [Concomitant]
     Active Substance: VANCOMYCIN
     Indication: Candida endophthalmitis
     Dosage: 1 MG/0.1 ML
  7. CEFTAZIDIME [Concomitant]
     Active Substance: CEFTAZIDIME
     Indication: Candida endophthalmitis
     Dosage: UNK (2.25 MG/0.1 ML)
  8. FLUCONAZOLE [Concomitant]
     Active Substance: FLUCONAZOLE
     Indication: Candida endophthalmitis
     Dosage: 600 MILLIGRAM, QD (DAILY) FOR 4 WEEKS
     Route: 048
  9. FLUCONAZOLE [Concomitant]
     Active Substance: FLUCONAZOLE
     Dosage: UNK (RESUMED)
     Route: 065

REACTIONS (5)
  - Candida endophthalmitis [Unknown]
  - Symptom recurrence [Unknown]
  - Visual impairment [Unknown]
  - Drug ineffective for unapproved indication [Unknown]
  - Drug ineffective [Unknown]
